FAERS Safety Report 6487476-3 (Version None)
Quarter: 2009Q4

REPORT INFORMATION
  Report Type: 
  Country: None (occurrence: None)
  Receive Date: 20091210
  Receipt Date: 20090814
  Transmission Date: 20100525
  Serious: No
  Sender: FDA-Public Use
  Company Number: US-AMGEN-KDL360152

PATIENT
  Sex: Male
  Weight: 91.7 kg

DRUGS (4)
  1. ENBREL [Suspect]
     Indication: PSORIASIS
     Route: 058
     Dates: start: 20030101
  2. ASPIRIN [Concomitant]
  3. GLUCOPHAGE [Concomitant]
  4. UNSPECIFIED MEDICATION [Concomitant]

REACTIONS (6)
  - CALCINOSIS [None]
  - DIZZINESS [None]
  - HYPOAESTHESIA [None]
  - NEUROPATHY PERIPHERAL [None]
  - TREMOR [None]
  - VERTIGO [None]
